FAERS Safety Report 26089733 (Version 1)
Quarter: 2025Q4

REPORT INFORMATION
  Report Type: Spontaneous
  Country: US (occurrence: US)
  Receive Date: 20251125
  Receipt Date: 20251125
  Transmission Date: 20260118
  Serious: No
  Sender: AMGEN
  Company Number: US-AMGEN-USASP2025230384

PATIENT
  Age: 45 Year
  Sex: Female

DRUGS (1)
  1. UPLIZNA [Suspect]
     Active Substance: INEBILIZUMAB-CDON
     Indication: Immunoglobulin G4 related disease
     Dosage: 300 MILLIGRAM, (Q2 WEEKS FOR 2 DOSES AND THEN Q6 MONTHS FROM FIRST DOSE DATE)
     Route: 040
     Dates: start: 20251117

REACTIONS (3)
  - Headache [Recovering/Resolving]
  - Erythema [Recovering/Resolving]
  - Swelling face [Recovering/Resolving]

NARRATIVE: CASE EVENT DATE: 20251117
